FAERS Safety Report 24160266 (Version 3)
Quarter: 2024Q3

REPORT INFORMATION
  Report Type: Spontaneous
  Country: US (occurrence: US)
  Receive Date: 20240801
  Receipt Date: 20240822
  Transmission Date: 20241016
  Serious: No
  Sender: DECIPHERA PHARMACEUTICALS
  Company Number: US-DECIPHERA PHARMACEUTICALS LLC-2024US000622

PATIENT
  Age: 88 Year
  Sex: Female

DRUGS (2)
  1. QINLOCK [Suspect]
     Active Substance: RIPRETINIB
     Indication: Gastrointestinal stromal tumour
     Dosage: 100 MILLIGRAM, QD
     Route: 048
     Dates: start: 20240711
  2. QINLOCK [Suspect]
     Active Substance: RIPRETINIB
     Dosage: 150 MILLIGRAM, QD
     Route: 048
     Dates: end: 20240716

REACTIONS (14)
  - Sinusitis [Unknown]
  - Facial pain [Unknown]
  - Neck pain [Unknown]
  - Pain in jaw [Unknown]
  - Pain of skin [Unknown]
  - Oropharyngeal pain [Unknown]
  - Blood pressure systolic increased [Unknown]
  - Dysphonia [Unknown]
  - Pain in extremity [Unknown]
  - Stomatitis [Unknown]
  - Headache [Unknown]
  - Arthralgia [Unknown]
  - Muscle spasms [Unknown]
  - Underdose [Unknown]

NARRATIVE: CASE EVENT DATE: 20240701
